FAERS Safety Report 9026543 (Version 1)
Quarter: 2012Q4

REPORT INFORMATION
  Report Type: Spontaneous
  Country: US (occurrence: None)
  Receive Date: 20121214
  Receipt Date: 20121214
  Transmission Date: 20130627
  Serious: Yes (Other)
  Sender: FDA-Public Use
  Company Number: None

PATIENT
  Sex: Female

DRUGS (1)
  1. REMICADE [Suspect]
     Dosage: 260mg every two weeks IV
     Route: 042
     Dates: start: 20121031, end: 20121211

REACTIONS (6)
  - Nausea [None]
  - Vomiting [None]
  - Hypertension [None]
  - Dyspnoea [None]
  - Rash generalised [None]
  - Infusion related reaction [None]
